FAERS Safety Report 23740394 (Version 3)
Quarter: 2024Q4

REPORT INFORMATION
  Report Type: Spontaneous
  Country: BR (occurrence: BR)
  Receive Date: 20240415
  Receipt Date: 20241218
  Transmission Date: 20250114
  Serious: Yes (Hospitalization, Other)
  Sender: ABBVIE
  Company Number: BR-ABBOTT-2024A-1380036

PATIENT
  Sex: Female
  Weight: 78 kg

DRUGS (2)
  1. SYNTHROID [Suspect]
     Active Substance: LEVOTHYROXINE SODIUM
     Indication: Product used for unknown indication
     Dosage: LOT EXPIRY: UNKNOWN
     Route: 048
  2. DIVALPROEX SODIUM [Suspect]
     Active Substance: DIVALPROEX SODIUM
     Indication: Anxiety
     Dosage: 500MG
     Route: 048
     Dates: start: 20240401

REACTIONS (12)
  - Suicidal ideation [Recovered/Resolved]
  - Malaise [Recovered/Resolved]
  - Feeling abnormal [Recovered/Resolved]
  - Muscular weakness [Recovered/Resolved]
  - Chills [Recovered/Resolved]
  - Bradyphrenia [Not Recovered/Not Resolved]
  - Nervousness [Not Recovered/Not Resolved]
  - Headache [Recovered/Resolved]
  - Neck pain [Recovered/Resolved]
  - Product prescribing issue [Unknown]
  - Product dose omission issue [Recovered/Resolved]
  - Vomiting [Recovered/Resolved]

NARRATIVE: CASE EVENT DATE: 20240401
